FAERS Safety Report 23615619 (Version 3)
Quarter: 2024Q1

REPORT INFORMATION
  Report Type: Spontaneous
  Country: US (occurrence: US)
  Receive Date: 20240311
  Receipt Date: 20240314
  Transmission Date: 20240410
  Serious: No
  Sender: FDA-Public Use
  Company Number: US-ABBVIE-5670502

PATIENT
  Age: 46 Year
  Sex: Female
  Weight: 103 kg

DRUGS (4)
  1. LILETTA [Suspect]
     Active Substance: LEVONORGESTREL
     Indication: Heavy menstrual bleeding
     Dosage: TIME INTERVAL: AS NECESSARY: FORM STRENGTH: 52 MILLIGRAM
     Route: 015
     Dates: start: 20240220, end: 20240305
  2. LILETTA [Suspect]
     Active Substance: LEVONORGESTREL
     Indication: Contraception
  3. NORVASC [Concomitant]
     Active Substance: AMLODIPINE BESYLATE
     Indication: Product used for unknown indication
     Dosage: FORM STRENGTH- 10 MILLIGRAM?TOOK 1 TABLET BY MOUTH
     Route: 048
     Dates: start: 20231124
  4. HYZAAR [Concomitant]
     Active Substance: HYDROCHLOROTHIAZIDE\LOSARTAN POTASSIUM
     Indication: Product used for unknown indication
     Dosage: FORM STRENGTH:100-25 MILLIGRAM?TOOK 1 TABLET BY MOUTH
     Route: 048
     Dates: start: 20231102

REACTIONS (2)
  - Heavy menstrual bleeding [Unknown]
  - Device dislocation [Unknown]

NARRATIVE: CASE EVENT DATE: 20240220
